FAERS Safety Report 18000956 (Version 2)
Quarter: 2020Q3

REPORT INFORMATION
  Report Type: Other
  Country: US (occurrence: US)
  Receive Date: 20200709
  Receipt Date: 20200810
  Transmission Date: 20201103
  Serious: Yes (Hospitalization)
  Sender: FDA-Public Use
  Company Number: US-ROCHE-2113461

PATIENT
  Age: 66 Year
  Sex: Female
  Weight: 74.46 kg

DRUGS (21)
  1. ESTRADIOL. [Concomitant]
     Active Substance: ESTRADIOL
     Indication: VULVOVAGINAL DRYNESS
     Route: 067
  2. AMBIEN [Concomitant]
     Active Substance: ZOLPIDEM TARTRATE
     Dosage: SOMETIMES ONLY TAKES 1/2 TABLET
     Route: 048
  3. STOOL SOFTENER (DOCUSATE) [Concomitant]
     Active Substance: DOCUSATE
     Dosage: 1 AT NIGHT
     Route: 048
  4. MIRALAX [Concomitant]
     Active Substance: POLYETHYLENE GLYCOL 3350
     Dosage: PLACES IN COFFEE
     Route: 048
  5. WELLBUTRIN [Concomitant]
     Active Substance: BUPROPION HYDROCHLORIDE
     Indication: DEPRESSION
     Route: 048
  6. GABAPENTIN. [Concomitant]
     Active Substance: GABAPENTIN
     Indication: NEURALGIA
     Route: 048
  7. ACTEMRA [Suspect]
     Active Substance: TOCILIZUMAB
     Indication: RHEUMATOID ARTHRITIS
     Route: 058
  8. PREDNISONE. [Concomitant]
     Active Substance: PREDNISONE
     Indication: ARTHRITIS
     Route: 048
  9. FIBER [Concomitant]
     Active Substance: PSYLLIUM HUSK
     Dosage: ONE AT NIGHT
     Route: 048
  10. DETROL [Concomitant]
     Active Substance: TOLTERODINE TARTRATE
     Route: 048
  11. ASPIRIN. [Concomitant]
     Active Substance: ASPIRIN
     Route: 048
  12. ACTEMRA [Suspect]
     Active Substance: TOCILIZUMAB
     Indication: RHEUMATOID ARTHRITIS
     Dosage: 162MG ? 09ML INJECTION EVERY 2 WEEKS
     Route: 058
     Dates: end: 201710
  13. ACTEMRA [Suspect]
     Active Substance: TOCILIZUMAB
     Indication: RENAL CANCER
     Dosage: 162MG ? 09ML INJECTION EVERY 2 WEEKS
     Route: 058
     Dates: start: 20180107
  14. PROTONIX [Concomitant]
     Active Substance: PANTOPRAZOLE SODIUM
     Indication: GASTROOESOPHAGEAL REFLUX DISEASE
     Route: 048
  15. LEVOTHROID [Concomitant]
     Active Substance: LEVOTHYROXINE SODIUM
     Route: 048
  16. FOLIC ACID. [Concomitant]
     Active Substance: FOLIC ACID
     Indication: ARTHRITIS
     Route: 048
  17. NORCO [Concomitant]
     Active Substance: ACETAMINOPHEN\HYDROCODONE BITARTRATE
     Indication: PAIN
     Route: 048
  18. XANAX [Concomitant]
     Active Substance: ALPRAZOLAM
     Indication: ANXIETY
     Dosage: AT NIGHT
     Route: 048
  19. CELEBREX [Concomitant]
     Active Substance: CELECOXIB
     Indication: ARTHRALGIA
     Route: 048
  20. ZANAFLEX [Concomitant]
     Active Substance: TIZANIDINE HYDROCHLORIDE
     Dosage: AT NIGHT
     Route: 048
  21. LOVASTATIN. [Concomitant]
     Active Substance: LOVASTATIN
     Indication: BLOOD CHOLESTEROL INCREASED
     Route: 048

REACTIONS (12)
  - Headache [Unknown]
  - Amnesia [Unknown]
  - Intervertebral disc protrusion [Recovering/Resolving]
  - Dislocation of vertebra [Unknown]
  - Spondylitis [Unknown]
  - Pain in extremity [Unknown]
  - Urinary incontinence [Not Recovered/Not Resolved]
  - Vulvovaginal dryness [Not Recovered/Not Resolved]
  - Intervertebral disc disorder [Recovering/Resolving]
  - Exostosis [Recovering/Resolving]
  - Pain [Not Recovered/Not Resolved]
  - Polyarthritis [Unknown]

NARRATIVE: CASE EVENT DATE: 20200614
